FAERS Safety Report 6457527-0 (Version None)
Quarter: 2009Q4

REPORT INFORMATION
  Report Type: 
  Country: None (occurrence: None)
  Receive Date: 20091125
  Receipt Date: 20091113
  Transmission Date: 20100525
  Serious: Yes (Other)
  Sender: FDA-Public Use
  Company Number: PHHY2009BE50141

PATIENT
  Sex: Female

DRUGS (8)
  1. RASILEZ [Suspect]
     Indication: HYPERTENSION
     Dosage: 150 MG DAILY
     Route: 048
     Dates: start: 20090730, end: 20091106
  2. LISINOPRIL [Concomitant]
  3. FUROSEMIDE [Concomitant]
  4. MOXONIDINE [Concomitant]
  5. AVANDIA [Concomitant]
  6. BEFACT FORTE [Concomitant]
  7. ROSUVASTATIN [Concomitant]
  8. GLURENORM [Concomitant]

REACTIONS (2)
  - HYPERKALAEMIA [None]
  - RENAL IMPAIRMENT [None]
